FAERS Safety Report 6671284-4 (Version None)
Quarter: 2010Q2

REPORT INFORMATION
  Report Type: 
  Country: None (occurrence: None)
  Receive Date: 20100407
  Receipt Date: 20100330
  Transmission Date: 20101027
  Serious: Yes (Hospitalization)
  Sender: FDA-Public Use
  Company Number: JP-ROCHE-695169

PATIENT
  Age: 8 Year
  Sex: Male
  Weight: 25 kg

DRUGS (5)
  1. TAMIFLU [Suspect]
     Indication: INFLUENZA
     Route: 048
     Dates: start: 20100125, end: 20100128
  2. ONON [Concomitant]
     Dosage: DRUG REPORTED AS:ONON(PRANLUKAST HYDRATE). DOSE FORM: PERORAL AGENT.
     Route: 048
  3. ZADITEN [Concomitant]
     Dosage: DRUG REPORTED AS ZADITEN(KETOTIFEN FUMARATE). DOSE FORM: PERORAL AGENT
     Route: 048
  4. MUCODYNE [Concomitant]
     Dosage: DOSE FORM: PERORAL AGENT
     Route: 048
  5. HOKUNALIN [Concomitant]
     Route: 048

REACTIONS (1)
  - ABNORMAL BEHAVIOUR [None]
